FAERS Safety Report 20788191 (Version 1)
Quarter: 2022Q2

REPORT INFORMATION
  Report Type: Spontaneous
  Country: US (occurrence: None)
  Receive Date: 20220505
  Receipt Date: 20220505
  Transmission Date: 20220721
  Serious: No
  Sender: FDA-Public Use
  Company Number: US-ROCHE-2836265

PATIENT
  Sex: Male
  Weight: 77.180 kg

DRUGS (1)
  1. OCREVUS [Suspect]
     Active Substance: OCRELIZUMAB
     Indication: Primary progressive multiple sclerosis
     Dosage: 2018 OR 2019
     Route: 042

REACTIONS (2)
  - SARS-CoV-2 antibody test negative [Unknown]
  - Pain [Unknown]

NARRATIVE: CASE EVENT DATE: 20210101
